FAERS Safety Report 19937586 (Version 1)
Quarter: 2021Q4

REPORT INFORMATION
  Report Type: Report from Study
  Country: None (occurrence: AU)
  Receive Date: 20211011
  Receipt Date: 20211011
  Transmission Date: 20220303
  Serious: Yes (Hospitalization)
  Sender: FDA-Public Use
  Company Number: AU-ABBVIE-21K-008-3964723-00

PATIENT
  Sex: Female

DRUGS (2)
  1. CARBIDOPA\LEVODOPA [Suspect]
     Active Substance: CARBIDOPA\LEVODOPA
     Indication: Parkinson^s disease
     Route: 050
     Dates: start: 20150918
  2. CARBIDOPA\LEVODOPA [Suspect]
     Active Substance: CARBIDOPA\LEVODOPA
     Route: 050

REACTIONS (5)
  - Urinary tract infection [Unknown]
  - Hypernatraemia [Unknown]
  - Dyskinesia [Unknown]
  - Hallucination [Unknown]
  - Device material issue [Not Recovered/Not Resolved]

NARRATIVE: CASE EVENT DATE: 20210101
